FAERS Safety Report 8915524 (Version 3)
Quarter: 2013Q1

REPORT INFORMATION
  Report Type: Spontaneous
  Country: US (occurrence: US)
  Receive Date: 20121119
  Receipt Date: 20130130
  Transmission Date: 20140127
  Serious: Yes (Other)
  Sender: FDA-Public Use
  Company Number: US-SANOFI-AVENTIS-2012SA081936

PATIENT
  Age: 74 Year
  Sex: Female
  Weight: 73 kg

DRUGS (14)
  1. PLAVIX [Suspect]
     Indication: PROPHYLAXIS
     Route: 048
     Dates: start: 20101019
  2. PLAVIX [Suspect]
     Indication: PROPHYLAXIS
     Route: 048
     Dates: start: 20101021, end: 20120827
  3. ASPIRIN [Suspect]
     Route: 065
     Dates: start: 20101019
  4. VALSARTAN [Concomitant]
  5. GLUCOVANCE [Concomitant]
     Dosage: 5/500
  6. OMEPRAZOLE [Concomitant]
  7. LEVSIN [Concomitant]
  8. VERAPAMIL [Concomitant]
  9. GLYBURIDE [Concomitant]
     Dates: start: 20101021
  10. FERROUS SULFATE [Concomitant]
     Dates: start: 20101021
  11. ALPHAGAN [Concomitant]
     Dosage: 0.1%
     Dates: start: 20101021
  12. TIMOLOL [Concomitant]
     Dosage: 0.5% ONE DROP IN EACH EYE DAILY
     Dates: start: 20101021
  13. SPIRIVA [Concomitant]
     Dosage: ONE PUFF DAILY
     Dates: start: 20101021
  14. ESOMEPRAZOLE [Concomitant]

REACTIONS (6)
  - Bone pain [Not Recovered/Not Resolved]
  - Pelvic pain [Unknown]
  - Back pain [Not Recovered/Not Resolved]
  - Unevaluable event [Recovered/Resolved]
  - Arthralgia [Not Recovered/Not Resolved]
  - Haemorrhage [Unknown]
